FAERS Safety Report 8507281-3 (Version None)
Quarter: 2012Q3

REPORT INFORMATION
  Report Type: 
  Country: None (occurrence: None)
  Receive Date: 20120712
  Receipt Date: 20111216
  Transmission Date: 20120928
  Serious: Yes (Death, Other)
  Sender: FDA-Public Use
  Company Number: US-ROCHE-1023629

PATIENT
  Sex: Male

DRUGS (8)
  1. NEXIUM [Concomitant]
     Dosage: DAILY
  2. METFORMIN HCL [Concomitant]
  3. FENTANYL-100 [Concomitant]
  4. CALCIUM [Concomitant]
  5. VITAMIN D [Concomitant]
  6. ACTEMRA [Suspect]
     Indication: RHEUMATOID ARTHRITIS
  7. ACTONEL [Concomitant]
     Dosage: 35 MG A WEEK.
  8. PREDNISONE [Concomitant]
     Dosage: 40 MAG DAY 1, 30 MG THE NEXT, 20MG THE NEXT, THEN 2 DAYS OF 10

REACTIONS (2)
  - DEATH [None]
  - CELLULITIS [None]
